FAERS Safety Report 23972900 (Version 1)
Quarter: 2024Q2

REPORT INFORMATION
  Report Type: Spontaneous
  Country: JP (occurrence: JP)
  Receive Date: 20240613
  Receipt Date: 20240613
  Transmission Date: 20240716
  Serious: Yes (Death, Hospitalization)
  Sender: FDA-Public Use
  Company Number: JP-BAYER-2024A059994

PATIENT
  Age: 72 Year
  Sex: Male

DRUGS (2)
  1. NUBEQA [Suspect]
     Active Substance: DAROLUTAMIDE
     Indication: Hormone-dependent prostate cancer
     Dosage: UNK
     Dates: start: 20231005, end: 20240401
  2. DOCETAXEL [Suspect]
     Active Substance: DOCETAXEL\DOCETAXEL ANHYDROUS
     Indication: Hormone-dependent prostate cancer

REACTIONS (5)
  - Renin decreased [Fatal]
  - Blood aldosterone decreased [Fatal]
  - Dysphonia [Fatal]
  - Dysphagia [Fatal]
  - Fatigue [Unknown]

NARRATIVE: CASE EVENT DATE: 20231101
